FAERS Safety Report 7357184-5 (Version None)
Quarter: 2011Q1

REPORT INFORMATION
  Report Type: 
  Country: None (occurrence: None)
  Receive Date: 20110317
  Receipt Date: 20110314
  Transmission Date: 20110831
  Serious: No
  Sender: FDA-Public Use
  Company Number: US-PFIZER INC-2011056274

PATIENT
  Sex: Female
  Weight: 113.38 kg

DRUGS (7)
  1. LYRICA [Suspect]
     Indication: FIBROMYALGIA
     Dosage: 50 MG, 3X/DAY
     Route: 048
     Dates: start: 20101001
  2. LISINOPRIL [Concomitant]
     Dosage: UNK
  3. KLOR-CON [Concomitant]
     Dosage: UNK
  4. FUROSEMIDE [Concomitant]
     Dosage: UNK
  5. LIPITOR [Concomitant]
     Dosage: UNK
  6. ATENOLOL [Concomitant]
     Dosage: UNK
  7. PROZAC [Concomitant]
     Dosage: UNK

REACTIONS (6)
  - COORDINATION ABNORMAL [None]
  - VISUAL IMPAIRMENT [None]
  - FIBROMYALGIA [None]
  - EUPHORIC MOOD [None]
  - PAIN [None]
  - FEELING DRUNK [None]
